FAERS Safety Report 4696697-1 (Version None)
Quarter: 2005Q2

REPORT INFORMATION
  Report Type: 
  Country: None (occurrence: None)
  Receive Date: 20050622
  Receipt Date: 20041227
  Transmission Date: 20051028
  Serious: Yes (Hospitalization)
  Sender: FDA-Public Use
  Company Number: JP-BOEHRINGER INGELHEIM PHARMMACEUTICALS, INC.-2004-BP-14382NB

PATIENT
  Sex: Male

DRUGS (9)
  1. VIRAMUNE [Suspect]
     Indication: HIV INFECTION
     Route: 048
     Dates: start: 20040206, end: 20040220
  2. KALETRA [Suspect]
     Indication: HIV INFECTION
     Route: 048
     Dates: start: 20040206
  3. CLARITHROMYCIN [Suspect]
     Indication: ATYPICAL MYCOBACTERIAL LYMPHADENITIS
     Route: 048
     Dates: start: 20020610
  4. BAKTAR [Concomitant]
     Indication: INFECTION PROPHYLAXIS
     Route: 048
     Dates: start: 20030401
  5. EBUTOL [Concomitant]
     Indication: ATYPICAL MYCOBACTERIAL LYMPHADENITIS
     Route: 048
     Dates: start: 20030401
  6. PAXIL [Concomitant]
     Indication: ANXIETY DISORDER
     Route: 048
     Dates: start: 20030401, end: 20040221
  7. LORAMET [Concomitant]
     Indication: ANXIETY DISORDER
     Route: 048
     Dates: start: 20030401
  8. RHYTHMY [Concomitant]
     Indication: INSOMNIA
     Route: 048
     Dates: start: 20030401, end: 20040221
  9. RIFABUTIN [Concomitant]
     Indication: ATYPICAL MYCOBACTERIAL LYMPHADENITIS
     Route: 048
     Dates: start: 20031124

REACTIONS (5)
  - ANOREXIA [None]
  - HALLUCINATION, AUDITORY [None]
  - MANIA [None]
  - MEMORY IMPAIRMENT [None]
  - NAUSEA [None]
